FAERS Safety Report 4966766-7 (Version None)
Quarter: 2006Q2

REPORT INFORMATION
  Report Type: 
  Country: None (occurrence: None)
  Receive Date: 20060407
  Receipt Date: 20051026
  Transmission Date: 20061013
  Serious: Yes (Death)
  Sender: FDA-Public Use
  Company Number: US-MERCK-0510USA09176

PATIENT
  Age: 49 Year
  Sex: Male
  Weight: 77 kg

DRUGS (4)
  1. VIOXX [Suspect]
     Indication: BACK PAIN
     Route: 048
     Dates: start: 20030301, end: 20030820
  2. VIOXX [Suspect]
     Indication: RHEUMATOID ARTHRITIS
     Route: 048
     Dates: start: 20030301, end: 20030820
  3. WELLBUTRIN [Concomitant]
     Indication: EX-SMOKER
     Route: 065
     Dates: end: 20030820
  4. AVAPRO [Concomitant]
     Indication: HYPERTENSION
     Route: 065
     Dates: start: 20030101, end: 20030820

REACTIONS (4)
  - BLOOD CHOLESTEROL INCREASED [None]
  - DYSPEPSIA [None]
  - MYOCARDIAL INFARCTION [None]
  - OEDEMA [None]
